FAERS Safety Report 25225150 (Version 1)
Quarter: 2025Q2

REPORT INFORMATION
  Report Type: Spontaneous
  Country: JP (occurrence: JP)
  Receive Date: 20250422
  Receipt Date: 20250422
  Transmission Date: 20250717
  Serious: Yes (Other)
  Sender: ROCHE
  Company Number: JP-CHUGAI-2025012407

PATIENT
  Age: 62 Year
  Sex: Female

DRUGS (4)
  1. ACTEMRA [Suspect]
     Active Substance: TOCILIZUMAB
     Indication: Still^s disease
     Route: 065
  2. PREDNISOLONE [Concomitant]
     Active Substance: PREDNISOLONE
     Indication: Still^s disease
     Route: 065
  3. PREDNISOLONE [Concomitant]
     Active Substance: PREDNISOLONE
     Route: 065
  4. SULFAMETHOXAZOLE\TRIMETHOPRIM [Concomitant]
     Active Substance: SULFAMETHOXAZOLE\TRIMETHOPRIM
     Route: 065

REACTIONS (1)
  - Haemophagocytic lymphohistiocytosis [Unknown]
